FAERS Safety Report 5400485-8 (Version None)
Quarter: 2007Q3

REPORT INFORMATION
  Report Type: 
  Country: None (occurrence: None)
  Receive Date: 20070730
  Receipt Date: 20070716
  Transmission Date: 20080115
  Serious: Yes (Death)
  Sender: FDA-Public Use
  Company Number: GB-BAUSCH-2007BL002229

PATIENT
  Age: 85 Year
  Sex: Female

DRUGS (6)
  1. PREDNISOLONE SODIUM PHOSPHATE [Suspect]
     Indication: ANAEMIA HAEMOLYTIC AUTOIMMUNE
  2. PREDNISOLONE SODIUM PHOSPHATE [Suspect]
  3. CYCLOPHOSPHAMIDE [Suspect]
     Indication: ANAEMIA HAEMOLYTIC AUTOIMMUNE
  4. RITUXIMAB [Suspect]
     Indication: ANAEMIA HAEMOLYTIC AUTOIMMUNE
  5. VINCRISTINE [Suspect]
     Indication: ANAEMIA HAEMOLYTIC AUTOIMMUNE
  6. IMMUNE GLOBULIN (HUMAN) [Suspect]
     Indication: ANAEMIA HAEMOLYTIC AUTOIMMUNE
     Route: 042

REACTIONS (2)
  - DRUG INEFFECTIVE [None]
  - REFUSAL OF TREATMENT BY PATIENT [None]
